FAERS Safety Report 14069779 (Version 6)
Quarter: 2023Q1

REPORT INFORMATION
  Report Type: Report from Study
  Country: IT (occurrence: IT)
  Receive Date: 20171010
  Receipt Date: 20230105
  Transmission Date: 20230417
  Serious: Yes (Hospitalization)
  Sender: FDA-Public Use
  Company Number: IT-JNJFOC-20171004094

PATIENT
  Age: 49 Year
  Sex: Female

DRUGS (3)
  1. TRABECTEDIN [Suspect]
     Active Substance: TRABECTEDIN
     Indication: Ovarian cancer recurrent
     Dosage: CYCLE 1
     Route: 042
     Dates: start: 20170926, end: 20170926
  2. TRABECTEDIN [Suspect]
     Active Substance: TRABECTEDIN
     Indication: Malignant peritoneal neoplasm
  3. TRABECTEDIN [Suspect]
     Active Substance: TRABECTEDIN
     Indication: Fallopian tube cancer

REACTIONS (7)
  - Syncope [Recovered/Resolved]
  - Hypotension [Recovered/Resolved]
  - Diarrhoea [Recovered/Resolved]
  - Asthenia [Recovered/Resolved]
  - Anaemia [Recovered/Resolved]
  - Vomiting [Recovered/Resolved]
  - Pyrexia [Recovered/Resolved]

NARRATIVE: CASE EVENT DATE: 20171003
